FAERS Safety Report 7105546-3 (Version None)
Quarter: 2010Q4

REPORT INFORMATION
  Report Type: 
  Country: None (occurrence: None)
  Receive Date: 20101116
  Receipt Date: 20101108
  Transmission Date: 20110411
  Serious: Yes (Other)
  Sender: FDA-Public Use
  Company Number: FR-ROCHE-739962

PATIENT
  Age: 70 Year
  Sex: Female

DRUGS (4)
  1. HERCEPTIN [Suspect]
     Route: 042
     Dates: start: 20100701
  2. TAXOL [Suspect]
     Route: 042
     Dates: start: 20100701, end: 20101007
  3. INNOHEP [Suspect]
     Indication: ATRIAL FIBRILLATION
     Route: 058
  4. DILTIAZEM [Suspect]
     Indication: ATRIAL FIBRILLATION
     Dosage: START DATE BEFORE 2009
     Route: 048
     Dates: start: 20090101

REACTIONS (1)
  - RASH ERYTHEMATOUS [None]
